FAERS Safety Report 5874992-8 (Version None)
Quarter: 2008Q3

REPORT INFORMATION
  Report Type: 
  Country: None (occurrence: None)
  Receive Date: 20080909
  Receipt Date: 20080722
  Transmission Date: 20090109
  Serious: Yes (Other)
  Sender: FDA-Public Use
  Company Number: JP-ASTRAZENECA-2008AP06935

PATIENT
  Age: 76 Year

DRUGS (1)
  1. MEROPENEM [Suspect]
     Route: 042

REACTIONS (1)
  - ENTEROCOLITIS HAEMORRHAGIC [None]
